FAERS Safety Report 23523844 (Version 2)
Quarter: 2024Q1

REPORT INFORMATION
  Report Type: Report from Study
  Country: ZA (occurrence: ZA)
  Receive Date: 20240214
  Receipt Date: 20240216
  Transmission Date: 20240410
  Serious: No
  Sender: FDA-Public Use
  Company Number: ZA-002147023-NVSC2024ZA029904

PATIENT
  Age: 28 Year
  Sex: Female

DRUGS (1)
  1. OFATUMUMAB [Suspect]
     Active Substance: OFATUMUMAB
     Indication: Multiple sclerosis
     Dosage: 20 MG, ONCE A MONTH (QMO)
     Route: 058

REACTIONS (1)
  - Vertebral lesion [Unknown]
